FAERS Safety Report 15586839 (Version 1)
Quarter: 2018Q4

REPORT INFORMATION
  Report Type: Spontaneous
  Country: US (occurrence: US)
  Receive Date: 20181101
  Receipt Date: 20181101
  Transmission Date: 20190205
  Serious: No
  Sender: FDA-Public Use
  Company Number: None

PATIENT
  Age: 60 Year
  Sex: Female
  Weight: 74.7 kg

DRUGS (1)
  1. PAZOPANIB (GW786034) (737754) [Suspect]
     Active Substance: PAZOPANIB
     Dates: end: 20181003

REACTIONS (5)
  - Febrile neutropenia [None]
  - Urosepsis [None]
  - Dehydration [None]
  - Hypertension [None]
  - Urinary tract infection [None]

NARRATIVE: CASE EVENT DATE: 20181010
